FAERS Safety Report 9320171 (Version 3)
Quarter: 2013Q2

REPORT INFORMATION
  Report Type: Spontaneous
  Country: FR (occurrence: FR)
  Receive Date: 20130530
  Receipt Date: 20130618
  Transmission Date: 20140414
  Serious: Yes (Death, Hospitalization, Other)
  Sender: FDA-Public Use
  Company Number: FR-B.I. PHARMACEUTICALS,INC./RIDGEFIELD-2013-FF-01489FF

PATIENT
  Age: 57 Year
  Sex: Female
  Weight: 60 kg

DRUGS (7)
  1. PRADAXA [Suspect]
     Indication: ATRIAL FIBRILLATION
     Dosage: 300 MG
     Route: 048
     Dates: start: 20130503
  2. KARDEGIC [Concomitant]
     Indication: TRANSIENT ISCHAEMIC ATTACK
     Dosage: 75 MG
     Route: 048
  3. CARDENSIEL [Concomitant]
     Indication: ATRIAL FIBRILLATION
     Dosage: 10 MG
     Route: 048
  4. CARDENSIEL [Concomitant]
     Indication: EJECTION FRACTION DECREASED
  5. INEXIUM [Concomitant]
     Indication: PROPHYLAXIS
     Dosage: 20 MG
     Route: 048
  6. CRESTOR [Concomitant]
     Indication: HYPERCHOLESTEROLAEMIA
     Dosage: 10 MG
     Route: 048
  7. TRIATEC [Concomitant]
     Indication: EJECTION FRACTION DECREASED
     Dosage: 2.5 MG
     Route: 048

REACTIONS (11)
  - Renal failure acute [Fatal]
  - Anuria [Fatal]
  - Embolic stroke [Fatal]
  - Intestinal ischaemia [Fatal]
  - Acute coronary syndrome [Fatal]
  - Renal necrosis [Fatal]
  - Myocardial infarction [Fatal]
  - Renal infarct [Fatal]
  - Coma [Unknown]
  - Cardiogenic shock [Unknown]
  - Hemiplegia [Unknown]
